FAERS Safety Report 8953221 (Version 1)
Quarter: 2012Q4

REPORT INFORMATION
  Report Type: 
  Country: GR (occurrence: GR)
  Receive Date: 20121206
  Receipt Date: 20121206
  Transmission Date: 20130627
  Serious: Yes (Other)
  Sender: FDA-Public Use
  Company Number: GR-009507513-1212GRC001497

PATIENT
  Sex: Female

DRUGS (1)
  1. NUVARING [Suspect]
     Dosage: UNK
     Dates: start: 2007

REACTIONS (4)
  - Complex regional pain syndrome [Unknown]
  - Erythema [Unknown]
  - Drug intolerance [Unknown]
  - Product quality issue [Unknown]
